FAERS Safety Report 5690154-1 (Version None)
Quarter: 2008Q2

REPORT INFORMATION
  Report Type: 
  Country: None (occurrence: None)
  Receive Date: 20080401
  Receipt Date: 20080319
  Transmission Date: 20081010
  Serious: Yes (Hospitalization)
  Sender: FDA-Public Use
  Company Number: PHBS2008TR03598

PATIENT
  Age: 7 Year
  Sex: Male

DRUGS (6)
  1. DEFEROXAMINE MESYLATE [Suspect]
     Indication: CHELATION THERAPY
  2. DEFEROXAMINE MESYLATE [Suspect]
     Dosage: 30 MG/KG/D
     Route: 058
  3. PREDNISOLONE [Concomitant]
     Dosage: 2 MG/KG/D
     Route: 048
  4. CYCLOPHOSPHAMIDE [Concomitant]
  5. RED BLOOD CELLS [Concomitant]
  6. DEFERIPRONE [Suspect]
     Indication: CHELATION THERAPY
     Dosage: 20 MG/KG, TID

REACTIONS (25)
  - ARTHRITIS [None]
  - ATELECTASIS [None]
  - BLOOD URINE PRESENT [None]
  - C-REACTIVE PROTEIN INCREASED [None]
  - ERYTHEMA [None]
  - HAEMOGLOBIN DECREASED [None]
  - HENOCH-SCHONLEIN PURPURA [None]
  - HYPERTENSION [None]
  - INTUSSUSCEPTION [None]
  - LUNG INFILTRATION [None]
  - MECHANICAL VENTILATION [None]
  - NEPHRITIS [None]
  - PALPABLE PURPURA [None]
  - PLATELET COUNT DECREASED [None]
  - PLEURAL DISORDER [None]
  - PLEURAL EFFUSION [None]
  - PROTEINURIA [None]
  - RED BLOOD CELL SEDIMENTATION RATE INCREASED [None]
  - RESPIRATORY FAILURE [None]
  - SERUM FERRITIN INCREASED [None]
  - TENDERNESS [None]
  - TREATMENT NONCOMPLIANCE [None]
  - URINE ANALYSIS ABNORMAL [None]
  - VASCULITIS [None]
  - WHITE BLOOD CELL COUNT INCREASED [None]
